FAERS Safety Report 4921396-8 (Version None)
Quarter: 2006Q1

REPORT INFORMATION
  Report Type: 
  Country: None (occurrence: None)
  Receive Date: 20060224
  Receipt Date: 20060215
  Transmission Date: 20060701
  Serious: Yes (Hospitalization)
  Sender: FDA-Public Use
  Company Number: 2006CG00325

PATIENT
  Age: 91 Year
  Sex: Female

DRUGS (6)
  1. NEXIUM [Suspect]
     Route: 048
     Dates: start: 20051116, end: 20060111
  2. GUTRON [Suspect]
     Route: 048
     Dates: start: 20060105, end: 20060111
  3. PULMICORT [Concomitant]
     Route: 055
  4. VASTAREL [Concomitant]
     Route: 048
     Dates: start: 20060105, end: 20060111
  5. FERO GRAD LP VITAMINE C 500 [Concomitant]
     Route: 048
     Dates: start: 20060105, end: 20060111
  6. FORADIL [Concomitant]

REACTIONS (3)
  - ARTHRALGIA [None]
  - CUTANEOUS VASCULITIS [None]
  - PURPURA [None]
